FAERS Safety Report 10032104 (Version 1)
Quarter: 2014Q1

REPORT INFORMATION
  Report Type: Spontaneous
  Country: BR (occurrence: BR)
  Receive Date: 20140324
  Receipt Date: 20140324
  Transmission Date: 20141002
  Serious: Yes (Hospitalization, Other)
  Sender: FDA-Public Use
  Company Number: PHHY2014BR032537

PATIENT
  Age: 23 Year
  Sex: Female
  Weight: 52 kg

DRUGS (3)
  1. FORASEQ [Suspect]
     Indication: ASTHMA
     Dosage: 1 DF, DAILY
  2. FORASEQ [Suspect]
     Dosage: 1 DF, (12/400 MCG, TWICE DAILY)
  3. BUDESONIDE [Concomitant]
     Dosage: 1 DF, DAILY
     Route: 045

REACTIONS (4)
  - Asthma [Unknown]
  - Dyspnoea [Unknown]
  - Obstructive airways disorder [Unknown]
  - Blood immunoglobulin E increased [Unknown]
